FAERS Safety Report 4564677-2 (Version None)
Quarter: 2005Q1

REPORT INFORMATION
  Report Type: 
  Country: None (occurrence: None)
  Receive Date: 20050126
  Receipt Date: 20050105
  Transmission Date: 20050727
  Serious: Yes (Life-Threatening, Other)
  Sender: FDA-Public Use
  Company Number: JP_050105604

PATIENT
  Age: 8 Year
  Sex: Male

DRUGS (7)
  1. ONCOVIN [Suspect]
     Indication: BRAIN NEOPLASM
     Dosage: 1.3 MG DAY
     Dates: start: 20041129, end: 20041129
  2. CYCLOPHOSPHAMIDE [Concomitant]
  3. RANDA (CISPLATIN PHARMACIA) [Concomitant]
  4. ETOPOSIDE [Concomitant]
  5. ZOFRAN [Concomitant]
  6. MESNA [Concomitant]
  7. RADIOTHERAPY [Concomitant]

REACTIONS (10)
  - ABNORMAL CHEST SOUND [None]
  - ACUTE RESPIRATORY DISTRESS SYNDROME [None]
  - DYSPNOEA [None]
  - HYPOXIA [None]
  - INFECTION [None]
  - PLATELET COUNT DECREASED [None]
  - PNEUMONITIS [None]
  - PYREXIA [None]
  - STEM CELL TRANSPLANT [None]
  - WHITE BLOOD CELL COUNT DECREASED [None]
